FAERS Safety Report 7575600-0 (Version None)
Quarter: 2011Q2

REPORT INFORMATION
  Report Type: 
  Country: None (occurrence: None)
  Receive Date: 20110627
  Receipt Date: 20110613
  Transmission Date: 20111010
  Serious: Yes (Hospitalization)
  Sender: FDA-Public Use
  Company Number: US-UCBSA-035386

PATIENT
  Sex: Female
  Weight: 73.02 kg

DRUGS (20)
  1. CIMZIA [Suspect]
     Indication: CROHN'S DISEASE
     Route: 058
     Dates: start: 20090306, end: 20100524
  2. RIFAXIMIN [Concomitant]
     Indication: CROHN'S DISEASE
  3. FLAGYL [Concomitant]
     Indication: CROHN'S DISEASE
  4. VANCOMYCIN [Concomitant]
     Indication: CROHN'S DISEASE
  5. VITAMIN D [Concomitant]
     Dosage: 1000 UNIT
  6. VICODIN OR LORTAB [Concomitant]
     Dosage: HYDROCODONE/ACETAMINOPHEN:5-500 MG, EVERY 4 HOURS
     Route: 048
  7. CIMZIA [Suspect]
     Route: 058
     Dates: end: 20100101
  8. SULFASALAZINE [Concomitant]
     Indication: CROHN'S DISEASE
  9. VASOTEC [Concomitant]
     Dosage: 2.5 MG
  10. MULTI-VITAMIN [Concomitant]
  11. PROBIOTIC PO [Concomitant]
     Route: 048
  12. PREDNISONE [Concomitant]
     Indication: CROHN'S DISEASE
     Route: 048
     Dates: start: 19990101
  13. ACETAMINOPHEN [Concomitant]
     Dosage: 500 MG, AS NCESSARY
     Route: 048
  14. CIPROFLOXACIN HCL [Concomitant]
     Indication: CROHN'S DISEASE
     Dates: start: 20040101
  15. CYANOCOBALAMIN [Concomitant]
     Dosage: 1000 MCG/MCL
  16. VITAMIN D [Concomitant]
  17. POTASSIUM CHLORIDE [Concomitant]
     Route: 048
  18. VALIUM [Concomitant]
     Dosage: 5 MG ONCE DAILY
  19. VITAMIN D [Concomitant]
     Dosage: 50000 UNIT
  20. AMBIEN [Concomitant]
     Dosage: 10 MG, NIGHTLY

REACTIONS (1)
  - CONGESTIVE CARDIOMYOPATHY [None]
